FAERS Safety Report 4414322-1 (Version None)
Quarter: 2004Q2

REPORT INFORMATION
  Report Type: 
  Country: None (occurrence: None)
  Receive Date: 20040630
  Receipt Date: 20040305
  Transmission Date: 20050107
  Serious: No
  Sender: FDA-Public Use
  Company Number: 04P-163-0252792-00

PATIENT
  Age: 59 Year
  Sex: Female
  Weight: 95.2554 kg

DRUGS (16)
  1. HUMIRA [Suspect]
     Indication: RHEUMATOID ARTHRITIS
     Dosage: 40 MG, 1 IN 2 WK, SUBCUTANEOUS
     Route: 058
     Dates: start: 20040126
  2. METHOTREXATE SODIUM [Concomitant]
  3. AMITRIPTYLINE HYDROCHLORIDE [Concomitant]
  4. PREDNISONE TAB [Concomitant]
  5. FOLIC ACID [Concomitant]
  6. LEVOTHYROXINE SODIUM [Concomitant]
  7. LOTREL [Concomitant]
  8. METOPROLOL [Concomitant]
  9. CONJUGATED ESTROGEN [Concomitant]
  10. ROFECOXIB [Concomitant]
  11. OXYCOCET [Concomitant]
  12. FUROSEMIDE [Concomitant]
  13. PARACETAMOL [Concomitant]
  14. ALENDRONATE SODIUM [Concomitant]
  15. MULTI-VITAMINS [Concomitant]
  16. CALCIUM [Concomitant]

REACTIONS (2)
  - BLOOD CALCIUM DECREASED [None]
  - RHEUMATOID ARTHRITIS [None]
